FAERS Safety Report 14046486 (Version 1)
Quarter: 2017Q4

REPORT INFORMATION
  Report Type: Spontaneous
  Country: US (occurrence: None)
  Receive Date: 20171005
  Receipt Date: 20171005
  Transmission Date: 20180321
  Serious: No
  Sender: FDA-Public Use
  Company Number: None

PATIENT
  Age: 56 Year
  Sex: Male

DRUGS (1)
  1. HARVONI [Suspect]
     Active Substance: LEDIPASVIR\SOFOSBUVIR

REACTIONS (7)
  - Pain in extremity [None]
  - Cough [None]
  - Drug dose omission [None]
  - Feeling abnormal [None]
  - Hiatus hernia [None]
  - Therapeutic response unexpected [None]
  - Gastritis [None]

NARRATIVE: CASE EVENT DATE: 20171003
